FAERS Safety Report 7476825-5 (Version None)
Quarter: 2011Q2

REPORT INFORMATION
  Report Type: 
  Country: None (occurrence: None)
  Receive Date: 20110512
  Receipt Date: 20110504
  Transmission Date: 20111010
  Serious: Yes (Hospitalization)
  Sender: FDA-Public Use
  Company Number: PHHY2011CA38467

PATIENT
  Sex: Female

DRUGS (7)
  1. URSO 250 [Concomitant]
     Dosage: 250 MG, QD
     Route: 048
  2. VITAMINS [Concomitant]
  3. BLOOD TRANSFUSION, AUXILIARY PRODUCTS [Concomitant]
     Dosage: EVERY 2 WEEKS
  4. HYDREA [Concomitant]
     Dosage: 1500 MG, QD
     Route: 048
  5. ALLOPURINOL [Concomitant]
     Dosage: 300 MG, QD
     Route: 048
  6. EXJADE [Suspect]
     Indication: MYELODYSPLASTIC SYNDROME
     Dosage: 1250 MG, UNK
     Route: 048
     Dates: start: 20101224
  7. AGRYLIN [Concomitant]
     Dosage: 0.5 MG, QD
     Route: 048

REACTIONS (3)
  - PYREXIA [None]
  - URINARY TRACT INFECTION [None]
  - FALL [None]
